FAERS Safety Report 7411126-2 (Version None)
Quarter: 2011Q2

REPORT INFORMATION
  Report Type: 
  Country: None (occurrence: None)
  Receive Date: 20110413
  Receipt Date: 20100223
  Transmission Date: 20111010
  Serious: Yes (Other)
  Sender: FDA-Public Use
  Company Number: US-BRISTOL-MYERS SQUIBB COMPANY-14978654

PATIENT
  Age: 61 Year
  Sex: Male

DRUGS (3)
  1. ERBITUX [Suspect]
     Indication: HEAD AND NECK CANCER
  2. ZOFRAN [Concomitant]
  3. BENADRYL [Concomitant]

REACTIONS (8)
  - PRODUCTIVE COUGH [None]
  - NAUSEA [None]
  - OXYGEN SATURATION DECREASED [None]
  - HEART RATE INCREASED [None]
  - RASH PRURITIC [None]
  - TACHYCARDIA [None]
  - URTICARIA [None]
  - DYSPNOEA [None]
